FAERS Safety Report 9742507 (Version 1)
Quarter: 2013Q4

REPORT INFORMATION
  Report Type: Spontaneous
  Country: BR (occurrence: BR)
  Receive Date: 20131210
  Receipt Date: 20131210
  Transmission Date: 20140711
  Serious: Yes (Hospitalization)
  Sender: FDA-Public Use
  Company Number: BR-ASTRAZENECA-2013SE88832

PATIENT
  Age: 75 Year
  Sex: Male
  Weight: 85 kg

DRUGS (2)
  1. ATACAND HCT [Suspect]
     Indication: HYPERTENSION
     Dosage: 16/12.5MG EVERY MORNING
     Route: 048
     Dates: end: 201311
  2. EUTHYROX [Concomitant]
     Indication: THYROID DISORDER
     Route: 048
     Dates: start: 2013

REACTIONS (2)
  - Myocardial infarction [Recovered/Resolved]
  - Pelvic haematoma [Not Recovered/Not Resolved]
